FAERS Safety Report 15736340 (Version 1)
Quarter: 2018Q4

REPORT INFORMATION
  Report Type: Spontaneous
  Country: US (occurrence: US)
  Receive Date: 20181203
  Receipt Date: 20181203
  Transmission Date: 20190205
  Serious: Yes (Hospitalization)
  Sender: FDA-Public Use
  Company Number: None

PATIENT
  Age: 71 Year
  Sex: Male
  Weight: 83.01 kg

DRUGS (2)
  1. DETEMIR INSULIN [Suspect]
     Active Substance: INSULIN DETEMIR
     Indication: DIABETES MELLITUS
     Dosage: ?          OTHER DOSE:70 UNITS;?
     Route: 058
     Dates: start: 20170719
  2. ASPART INSULIN [Suspect]
     Active Substance: INSULIN ASPART
     Indication: DIABETES MELLITUS
     Dosage: ?          OTHER DOSE:40 UNITS;?
     Route: 058
     Dates: start: 20170719

REACTIONS (2)
  - Hypoglycaemia [None]
  - Hypophagia [None]

NARRATIVE: CASE EVENT DATE: 20180612
